FAERS Safety Report 5197750-9 (Version None)
Quarter: 2006Q4

REPORT INFORMATION
  Report Type: 
  Country: None (occurrence: None)
  Receive Date: 20061228
  Receipt Date: 20061214
  Transmission Date: 20070319
  Serious: No
  Sender: FDA-Public Use
  Company Number: OMPQ-NO-0612S-1600

PATIENT
  Age: 60 Year
  Sex: Male
  Weight: 99 kg

DRUGS (7)
  1. OMNIPAQUE 140 [Suspect]
     Indication: COLON CANCER
     Dosage: 150 ML, SINGLE DOSE, I.V.
     Route: 042
     Dates: start: 20061206, end: 20061206
  2. CANDESARTAN CILEXETIL (BLOPRESS) [Concomitant]
  3. ADALAT [Concomitant]
  4. DOXAZOSIN MESYLATE [Concomitant]
  5. LASIX [Concomitant]
  6. ALLOPURINOL [Concomitant]
  7. ALDACTONE [Concomitant]

REACTIONS (3)
  - ANAPHYLACTIC SHOCK [None]
  - HYPERHIDROSIS [None]
  - LOSS OF CONSCIOUSNESS [None]
